FAERS Safety Report 23538550 (Version 1)
Quarter: 2024Q1

REPORT INFORMATION
  Report Type: Report from Study
  Country: US (occurrence: None)
  Receive Date: 20240219
  Receipt Date: 20240219
  Transmission Date: 20240410
  Serious: Yes (Death)
  Sender: FDA-Public Use
  Company Number: 2024A039453

PATIENT
  Age: 81 Year
  Sex: Female
  Weight: 79.8 kg

DRUGS (1)
  1. FASENRA [Suspect]
     Active Substance: BENRALIZUMAB
     Indication: Asthma
     Route: 058
     Dates: end: 20240213

REACTIONS (1)
  - Death [Fatal]

NARRATIVE: CASE EVENT DATE: 20240213
